FAERS Safety Report 12984484 (Version 1)
Quarter: 2016Q4

REPORT INFORMATION
  Report Type: Spontaneous
  Country: US (occurrence: US)
  Receive Date: 20161129
  Receipt Date: 20161129
  Transmission Date: 20170207
  Serious: Yes (Other)
  Sender: FDA-Public Use
  Company Number: US-PFIZER INC-2016550797

PATIENT
  Age: 8 Year
  Sex: Male

DRUGS (2)
  1. ENBREL [Suspect]
     Active Substance: ETANERCEPT
     Indication: JUVENILE IDIOPATHIC ARTHRITIS
     Dosage: UNK
     Route: 065
     Dates: start: 2014
  2. METHOTREXATE SODIUM. [Suspect]
     Active Substance: METHOTREXATE SODIUM
     Dosage: UNK
     Dates: start: 2014

REACTIONS (6)
  - Drug ineffective [Unknown]
  - Gait disturbance [Unknown]
  - Periodontal disease [Unknown]
  - Antinuclear antibody increased [Unknown]
  - Undifferentiated connective tissue disease [Unknown]
  - Chillblains [Unknown]
